FAERS Safety Report 7384389-X (Version None)
Quarter: 2011Q1

REPORT INFORMATION
  Report Type: 
  Country: None (occurrence: None)
  Receive Date: 20110330
  Receipt Date: 20100204
  Transmission Date: 20110831
  Serious: No
  Sender: FDA-Public Use
  Company Number: US-BAYER-201013797NA

PATIENT
  Sex: Female

DRUGS (1)
  1. MIRENA [Suspect]
     Indication: CONTRACEPTION
     Dosage: 20 ?G/D, CONT
     Route: 015

REACTIONS (5)
  - MEDICAL DEVICE COMPLICATION [None]
  - BREAST TENDERNESS [None]
  - NAUSEA [None]
  - HEADACHE [None]
  - VOMITING [None]
